FAERS Safety Report 5372056-3 (Version None)
Quarter: 2007Q2

REPORT INFORMATION
  Report Type: 
  Country: None (occurrence: None)
  Receive Date: 20070627
  Receipt Date: 20070615
  Transmission Date: 20071010
  Serious: Yes (Other)
  Sender: FDA-Public Use
  Company Number: JP-ROCHE-491881

PATIENT
  Age: 66 Year
  Sex: Female
  Weight: 50 kg

DRUGS (4)
  1. TAMIFLU [Suspect]
     Route: 048
     Dates: start: 20070327, end: 20070327
  2. MEDICON [Concomitant]
     Route: 048
     Dates: start: 20070327, end: 20070328
  3. LORAZEPAM [Concomitant]
     Dosage: DRUG REPORTED AS AZROGEN (LORAZEPAM).
     Route: 048
  4. SEPAZON [Concomitant]
     Route: 048

REACTIONS (2)
  - ALTERED STATE OF CONSCIOUSNESS [None]
  - CONVULSION [None]
